FAERS Safety Report 6740226-5 (Version None)
Quarter: 2010Q2

REPORT INFORMATION
  Report Type: 
  Country: None (occurrence: None)
  Receive Date: 20100525
  Receipt Date: 20100514
  Transmission Date: 20101027
  Serious: Yes (Hospitalization)
  Sender: FDA-Public Use
  Company Number: B0652896A

PATIENT
  Sex: Female

DRUGS (4)
  1. LAMICTAL [Suspect]
     Indication: EPILEPSY
     Route: 048
     Dates: start: 20091101
  2. BACLOFENE [Concomitant]
  3. DITROPAN [Concomitant]
     Route: 048
  4. PROZAC [Concomitant]

REACTIONS (2)
  - IRON DEFICIENCY ANAEMIA [None]
  - MICROCYTIC ANAEMIA [None]
